FAERS Safety Report 7025537-0 (Version None)
Quarter: 2010Q4

REPORT INFORMATION
  Report Type: 
  Country: None (occurrence: None)
  Receive Date: 20101003
  Receipt Date: 20100921
  Transmission Date: 20110411
  Serious: Yes (Other)
  Sender: FDA-Public Use
  Company Number: PHHY2010FR62603

PATIENT
  Age: 21 Year
  Sex: Female

DRUGS (6)
  1. CYCLOSPORINE [Suspect]
     Indication: RENAL TRANSPLANT
  2. AZATHIOPRINE [Suspect]
     Indication: RENAL TRANSPLANT
  3. CORTICOSTEROIDS [Suspect]
     Indication: RENAL TRANSPLANT
  4. ANTI-THYMOCYTE GLOBULIN NOS [Concomitant]
     Indication: RENAL TRANSPLANT
  5. CALCIUM CARBONATE [Concomitant]
     Dosage: 1200 MG
     Dates: start: 20030101, end: 20050101
  6. COLECALCIFEROL [Concomitant]
     Dosage: 800 UI
     Dates: start: 20030101, end: 20050101

REACTIONS (15)
  - BACTERIAL DISEASE CARRIER [None]
  - CALCINOSIS [None]
  - HAEMODIALYSIS [None]
  - KIDNEY FIBROSIS [None]
  - METAPLASIA [None]
  - NEPHRECTOMY [None]
  - OSTEOPENIA [None]
  - PYELONEPHRITIS [None]
  - RENAL FAILURE CHRONIC [None]
  - RENAL TRANSPLANT [None]
  - URINARY TRACT INFECTION [None]
  - URINE OUTPUT DECREASED [None]
  - VESICOURETERAL REFLUX SURGERY [None]
  - VESICOURETERIC REFLUX [None]
  - VITAMIN D DEFICIENCY [None]
